FAERS Safety Report 24633765 (Version 2)
Quarter: 2024Q4

REPORT INFORMATION
  Report Type: Report from Study
  Country: US (occurrence: US)
  Receive Date: 20241118
  Receipt Date: 20241127
  Transmission Date: 20250115
  Serious: Yes (Hospitalization)
  Sender: PFIZER
  Company Number: US-PFIZER INC-PV202400136533

PATIENT
  Age: 67 Year
  Sex: Male
  Weight: 62.041 kg

DRUGS (12)
  1. ENCORAFENIB [Suspect]
     Active Substance: ENCORAFENIB
     Indication: Non-small cell lung cancer
     Dosage: 450 MG, ONCE DAILY (QD), CONTINUOUS
     Route: 048
     Dates: start: 20191003, end: 20241018
  2. BINIMETINIB [Suspect]
     Active Substance: BINIMETINIB
     Indication: Non-small cell lung cancer
     Dosage: 45 MG, 2X/DAY, CONTINUOUS
     Route: 048
     Dates: start: 20191003, end: 20241018
  3. PANTOPRAZOLE [Suspect]
     Active Substance: PANTOPRAZOLE
     Indication: Gastrointestinal haemorrhage
     Dosage: 40 MG, 1X/DAY
     Route: 048
     Dates: start: 20231005, end: 20240909
  4. FERROUS SULFATE [Concomitant]
     Active Substance: FERROUS SULFATE
     Indication: Iron deficiency
     Dosage: 325 MG, ALTERNATE DAY
     Route: 048
     Dates: start: 20220914, end: 20240929
  5. OLANZAPINE [Concomitant]
     Active Substance: OLANZAPINE
     Indication: Mental disorder
     Dosage: 20 MG, 1X/DAY
     Route: 048
     Dates: start: 20221129, end: 20240909
  6. OXCARBAZEPINE [Concomitant]
     Active Substance: OXCARBAZEPINE
     Indication: Mental disorder
     Dosage: 300 MG, 2X/DAY
     Route: 048
     Dates: start: 20221129, end: 20240909
  7. ALVESCO [Concomitant]
     Active Substance: CICLESONIDE
     Indication: Chronic obstructive pulmonary disease
     Dosage: 160 UG, 2X/DAY, INHALATION
     Route: 055
     Dates: start: 20220914, end: 20240909
  8. XOPENEX HFA [Concomitant]
     Active Substance: LEVALBUTEROL TARTRATE
     Indication: Chronic obstructive pulmonary disease
     Dosage: 45 UG, QID AS NEEDED, INHALATION
     Route: 055
     Dates: start: 20220914, end: 20240909
  9. DULOXETINE [Concomitant]
     Active Substance: DULOXETINE
     Indication: Mental disorder
     Dosage: 30 MG, 1X/DAY
     Route: 048
     Dates: start: 20220914, end: 20240909
  10. ALBUTEROL\BUDESONIDE [Concomitant]
     Active Substance: ALBUTEROL\BUDESONIDE
     Indication: Chronic obstructive pulmonary disease
     Dosage: BID, AS NEEDED, INHALATION NEB
     Route: 055
     Dates: start: 20220914, end: 20240909
  11. ALBUTEROL\IPRATROPIUM [Concomitant]
     Active Substance: ALBUTEROL\IPRATROPIUM
     Indication: Chronic obstructive pulmonary disease
     Dosage: 25 MG, BID AS NEEDED, INHALATION
     Route: 055
     Dates: start: 20221101, end: 20240909
  12. METOPROLOL TARTRATE [Concomitant]
     Active Substance: METOPROLOL TARTRATE
     Indication: Hypertension
     Dosage: 25 MG, 2X/DAY
     Route: 048
     Dates: start: 20231005, end: 20240909

REACTIONS (1)
  - Anaemia [Recovered/Resolved]

NARRATIVE: CASE EVENT DATE: 20241018
